FAERS Safety Report 9317940 (Version 1)
Quarter: 2013Q2

REPORT INFORMATION
  Report Type: Spontaneous
  Country: US (occurrence: US)
  Receive Date: 20130530
  Receipt Date: 20130530
  Transmission Date: 20140414
  Serious: No
  Sender: FDA-Public Use
  Company Number: US-GLAXOSMITHKLINE-A0996688A

PATIENT
  Age: 75 Year
  Sex: Male

DRUGS (16)
  1. VENTOLIN [Suspect]
     Indication: BRONCHOSPASM
     Dosage: 2PUFF FOUR TIMES PER DAY
     Route: 055
     Dates: start: 20120912, end: 20120926
  2. AMMONIUM LACTATE [Concomitant]
     Route: 061
  3. COUMADIN [Concomitant]
  4. DIGOXIN [Concomitant]
  5. KLOR-CON [Concomitant]
  6. LASIX [Concomitant]
  7. PRILOSEC [Concomitant]
  8. CAFERGOT [Concomitant]
  9. OLUX [Concomitant]
     Route: 061
  10. LIDOCAINE [Concomitant]
     Route: 061
  11. KETOCONAZOLE [Concomitant]
  12. MUPIROCIN [Concomitant]
     Route: 061
  13. ALTERNAGEL [Concomitant]
  14. CENTRUM SILVER [Concomitant]
  15. AFRIN [Concomitant]
  16. OCEAN NASAL SPRAY [Concomitant]

REACTIONS (2)
  - Abdominal discomfort [Not Recovered/Not Resolved]
  - Diarrhoea [Unknown]
